FAERS Safety Report 17698514 (Version 1)
Quarter: 2020Q2

REPORT INFORMATION
  Report Type: Spontaneous
  Country: US (occurrence: US)
  Receive Date: 20200422
  Receipt Date: 20200422
  Transmission Date: 20200714
  Serious: No
  Sender: FDA-Public Use
  Company Number: None

PATIENT
  Age: 77 Year
  Sex: Female
  Weight: 74.39 kg

DRUGS (11)
  1. NOSE DROPS [Concomitant]
  2. VITAMIN B SHOTS [Concomitant]
  3. BLOOD PRESSURE [Concomitant]
  4. ESCITALOPRAM OXALATE. [Concomitant]
     Active Substance: ESCITALOPRAM OXALATE
  5. STOMACH [Concomitant]
  6. DEPRESSION [Concomitant]
  7. CETIRIZINE [Concomitant]
     Active Substance: CETIRIZINE HYDROCHLORIDE
  8. ALLEGRA [Concomitant]
     Active Substance: FEXOFENADINE HYDROCHLORIDE
  9. ZYRTEC [Suspect]
     Active Substance: CETIRIZINE HYDROCHLORIDE
     Indication: DYSPHONIA
     Dosage: ?          QUANTITY:10 MG MILLIGRAM(S);?
  10. MIRTAZAPINE. [Concomitant]
     Active Substance: MIRTAZAPINE
  11. LISINOPRIL. [Concomitant]
     Active Substance: LISINOPRIL

REACTIONS (6)
  - Product substitution issue [None]
  - Skin exfoliation [None]
  - Dysgraphia [None]
  - Speech sound disorder [None]
  - Urticaria [None]
  - Condition aggravated [None]
